FAERS Safety Report 17553167 (Version 2)
Quarter: 2020Q2

REPORT INFORMATION
  Report Type: Spontaneous
  Country: US (occurrence: US)
  Receive Date: 20200317
  Receipt Date: 20200409
  Transmission Date: 20200713
  Serious: Yes (Other)
  Sender: FDA-Public Use
  Company Number: US-ALLERGAN-2011605US

PATIENT
  Sex: Female

DRUGS (1)
  1. TRIPTORELIN PAMOATE - BP [Suspect]
     Active Substance: TRIPTORELIN PAMOATE
     Indication: PRECOCIOUS PUBERTY
     Dosage: UNK UNK, SINGLE
     Route: 030
     Dates: start: 20200107, end: 20200107

REACTIONS (5)
  - Emotional disorder [Unknown]
  - Off label use [Unknown]
  - Cortisol decreased [Unknown]
  - Suicidal ideation [Unknown]
  - Vitamin D decreased [Unknown]

NARRATIVE: CASE EVENT DATE: 202002
